FAERS Safety Report 15096835 (Version 1)
Quarter: 2018Q3

REPORT INFORMATION
  Report Type: Spontaneous
  Country: US (occurrence: US)
  Receive Date: 20180702
  Receipt Date: 20180702
  Transmission Date: 20181010
  Serious: No
  Sender: FDA-Public Use
  Company Number: US-TEVA-809047USA

PATIENT

DRUGS (1)
  1. DESIPRAMINE [Suspect]
     Active Substance: DESIPRAMINE

REACTIONS (2)
  - Drug effect decreased [Unknown]
  - Pain in extremity [Unknown]
